FAERS Safety Report 6614055-7 (Version None)
Quarter: 2010Q1

REPORT INFORMATION
  Report Type: 
  Country: None (occurrence: None)
  Receive Date: 20100304
  Receipt Date: 20100217
  Transmission Date: 20100710
  Serious: Yes (Hospitalization)
  Sender: FDA-Public Use
  Company Number: PHHY2009AR44361

PATIENT
  Sex: Female

DRUGS (3)
  1. ACLASTA [Suspect]
     Indication: OSTEOPOROSIS
     Dosage: 1 ANNUAL INFUSION
     Dates: start: 20081219
  2. CALCIUM [Concomitant]
  3. VITAMIN D [Concomitant]

REACTIONS (7)
  - COMA [None]
  - GAIT DISTURBANCE [None]
  - LARGE INTESTINE PERFORATION [None]
  - PANCREATECTOMY [None]
  - PANCREATITIS [None]
  - PNEUMONIA [None]
  - TRACHEOSTOMY [None]
